FAERS Safety Report 16825084 (Version 1)
Quarter: 2019Q3

REPORT INFORMATION
  Report Type: Report from Study
  Country: US (occurrence: US)
  Receive Date: 20190919
  Receipt Date: 20190919
  Transmission Date: 20191005
  Serious: Yes (Life-Threatening)
  Sender: FDA-Public Use
  Company Number: US-BEH-2019107045

PATIENT
  Age: 28 Year
  Sex: Female
  Weight: 82.54 kg

DRUGS (2)
  1. HIZENTRA [Suspect]
     Active Substance: HUMAN IMMUNOGLOBULIN G
     Indication: CHRONIC INFLAMMATORY DEMYELINATING POLYRADICULONEUROPATHY
     Dosage: 18 GRAM, SINGLE
     Route: 042
     Dates: start: 20190911, end: 20190911
  2. HIZENTRA [Suspect]
     Active Substance: HUMAN IMMUNOGLOBULIN G
     Dosage: 17 GRAM, SINGLE
     Route: 042
     Dates: start: 20190912, end: 20190912

REACTIONS (10)
  - Myalgia [Recovered/Resolved]
  - No adverse event [Unknown]
  - Swelling face [Recovered/Resolved]
  - Infusion site erythema [Recovered/Resolved]
  - Anaphylactic reaction [Recovered/Resolved]
  - Incorrect route of product administration [Unknown]
  - Headache [Recovered/Resolved]
  - Diarrhoea [Recovered/Resolved]
  - Chest pain [Recovered/Resolved]
  - Swollen tongue [Recovered/Resolved]

NARRATIVE: CASE EVENT DATE: 20190911
